FAERS Safety Report 15905926 (Version 1)
Quarter: 2019Q1

REPORT INFORMATION
  Report Type: Spontaneous
  Country: US (occurrence: US)
  Receive Date: 20190202
  Receipt Date: 20190202
  Transmission Date: 20190417
  Serious: Yes (Life-Threatening, Hospitalization, Disabling)
  Sender: FDA-Public Use
  Company Number: None

PATIENT
  Age: 55 Year
  Sex: Male
  Weight: 157.5 kg

DRUGS (1)
  1. TALTZ [Suspect]
     Active Substance: IXEKIZUMAB

REACTIONS (5)
  - Headache [None]
  - Cerebrovascular accident [None]
  - Immunosuppression [None]
  - Meningitis bacterial [None]
  - Blindness unilateral [None]

NARRATIVE: CASE EVENT DATE: 20161225
